FAERS Safety Report 17133015 (Version 1)
Quarter: 2019Q4

REPORT INFORMATION
  Report Type: Spontaneous
  Country: US (occurrence: US)
  Receive Date: 20191209
  Receipt Date: 20191209
  Transmission Date: 20200122
  Serious: Yes (Other)
  Sender: FDA-Public Use
  Company Number: None

PATIENT
  Age: 45 Year
  Sex: Female
  Weight: 87.3 kg

DRUGS (5)
  1. LEVOTHYROXINE. [Concomitant]
     Active Substance: LEVOTHYROXINE
  2. RISPERIDONE TAB 2MG [Suspect]
     Active Substance: RISPERIDONE
     Indication: PARANOIA
     Dosage: ?          QUANTITY:1 TABLET(S);?
     Route: 048
     Dates: start: 20191204, end: 20191206
  3. RISPERIDONE TAB 2MG [Suspect]
     Active Substance: RISPERIDONE
     Indication: DEPRESSION
     Dosage: ?          QUANTITY:1 TABLET(S);?
     Route: 048
     Dates: start: 20191204, end: 20191206
  4. RISPERIDONE TAB 2MG [Suspect]
     Active Substance: RISPERIDONE
     Indication: ANXIETY
     Dosage: ?          QUANTITY:1 TABLET(S);?
     Route: 048
     Dates: start: 20191204, end: 20191206
  5. OLLY GUMMY VITAMIN [Concomitant]

REACTIONS (3)
  - Hypersensitivity [None]
  - Nasal congestion [None]
  - Dyspnoea [None]

NARRATIVE: CASE EVENT DATE: 20191204
